FAERS Safety Report 6498688-7 (Version None)
Quarter: 2009Q4

REPORT INFORMATION
  Report Type: 
  Country: None (occurrence: None)
  Receive Date: 20091127
  Receipt Date: 20090914
  Transmission Date: 20100525
  Serious: Yes (Hospitalization)
  Sender: FDA-Public Use
  Company Number: 291655

PATIENT
  Age: 88 Year
  Sex: Female
  Weight: 61.2 kg

DRUGS (4)
  1. NOVOLOG [Suspect]
     Indication: DIABETES MELLITUS
     Dosage: SLIDING SCALE, SUBCUTANEOUS
     Route: 058
     Dates: start: 20070101
  2. LANTUS [Concomitant]
  3. ASPIRIN [Concomitant]
  4. VITAMINS (ASCORBIC ACID, ERGOCALCIFEROL, NICOTINAMIDE, RETINOL, RIBOFL [Concomitant]

REACTIONS (1)
  - BLOOD GLUCOSE INCREASED [None]
